FAERS Safety Report 10056707 (Version 3)
Quarter: 2014Q2

REPORT INFORMATION
  Report Type: Report from Study
  Country: AU (occurrence: AU)
  Receive Date: 20140403
  Receipt Date: 20140410
  Transmission Date: 20141212
  Serious: Yes (Life-Threatening)
  Sender: FDA-Public Use
  Company Number: PHHY2014AU038807

PATIENT
  Age: 74 Year
  Sex: Female

DRUGS (4)
  1. ACLASTA [Suspect]
     Dosage: 5 MG, UNK
     Route: 042
     Dates: start: 20140326
  2. SOMAC [Concomitant]
     Indication: REFLUX GASTRITIS
     Dosage: UNK DAILY
     Route: 048
  3. BUSCOPAN [Concomitant]
     Dosage: UNK
  4. MICARDIS [Concomitant]
     Indication: HYPERTENSION
     Dosage: UNK DAILY
     Route: 048

REACTIONS (16)
  - Terminal state [Unknown]
  - Osteoarthritis [Unknown]
  - Emotional distress [Unknown]
  - Crying [Unknown]
  - Movement disorder [Unknown]
  - Myalgia [Unknown]
  - Pruritus [Unknown]
  - Dyspnoea [Unknown]
  - Vomiting [Unknown]
  - Oedema peripheral [Unknown]
  - Malaise [Unknown]
  - Dehydration [Unknown]
  - Pain in jaw [Not Recovered/Not Resolved]
  - Back pain [Not Recovered/Not Resolved]
  - Neck pain [Not Recovered/Not Resolved]
  - Pain in extremity [Not Recovered/Not Resolved]
